FAERS Safety Report 14484378 (Version 1)
Quarter: 2018Q1

REPORT INFORMATION
  Report Type: Spontaneous
  Country: US (occurrence: US)
  Receive Date: 20180202
  Receipt Date: 20180202
  Transmission Date: 20180509
  Serious: No
  Sender: FDA-Public Use
  Company Number: None

PATIENT
  Age: 57 Year
  Sex: Female
  Weight: 60.3 kg

DRUGS (2)
  1. OMNEPRIAZOLE [Concomitant]
  2. IC OSELTAMIVIR PHOS 75MG CAPSULE [Suspect]
     Active Substance: OSELTAMIVIR PHOSPHATE
     Indication: INFLUENZA
     Dosage: ?          QUANTITY:1 CAPSULE(S);?
     Route: 048
     Dates: start: 20180130, end: 20180131

REACTIONS (7)
  - Therapy cessation [None]
  - Headache [None]
  - Fatigue [None]
  - Asthenia [None]
  - Feeling abnormal [None]
  - Vomiting [None]
  - Dysstasia [None]

NARRATIVE: CASE EVENT DATE: 20180131
